FAERS Safety Report 14235774 (Version 2)
Quarter: 2017Q4

REPORT INFORMATION
  Report Type: Report from Study
  Country: CA (occurrence: CA)
  Receive Date: 20171129
  Receipt Date: 20171201
  Transmission Date: 20180321
  Serious: Yes (Hospitalization)
  Sender: FDA-Public Use
  Company Number: CA-GLAXOSMITHKLINE-CA2017GSK136492

PATIENT
  Age: 59 Year
  Sex: Male

DRUGS (16)
  1. COSENTYX [Suspect]
     Active Substance: SECUKINUMAB
     Indication: PSORIATIC ARTHROPATHY
     Dosage: 300 MG, WE
     Route: 058
     Dates: start: 20170803, end: 20170824
  2. COSENTYX [Suspect]
     Active Substance: SECUKINUMAB
     Indication: PSORIASIS
     Dosage: 300 MG, QMO
     Route: 058
     Dates: start: 20170831
  3. CELEBREX [Concomitant]
     Active Substance: CELECOXIB
  4. LEFLUNOMIDE. [Concomitant]
     Active Substance: LEFLUNOMIDE
  5. SULFASALAZINE. [Concomitant]
     Active Substance: SULFASALAZINE
  6. COSENTYX [Suspect]
     Active Substance: SECUKINUMAB
     Dosage: 300 MG, QMO
     Route: 058
     Dates: start: 20171103
  7. COSENTYX [Suspect]
     Active Substance: SECUKINUMAB
     Dosage: 300 MG, QMO
     Route: 058
     Dates: start: 201709
  8. TYLENOL [Concomitant]
     Active Substance: ACETAMINOPHEN
  9. HUMIRA [Concomitant]
     Active Substance: ADALIMUMAB
  10. ENBREL [Concomitant]
     Active Substance: ETANERCEPT
  11. PREDNISONE. [Concomitant]
     Active Substance: PREDNISONE
  12. SIMPONI [Concomitant]
     Active Substance: GOLIMUMAB
  13. COSENTYX [Suspect]
     Active Substance: SECUKINUMAB
     Dosage: 300 MG, QMO
     Route: 058
     Dates: start: 20171001
  14. METHOTREXATE. [Concomitant]
     Active Substance: METHOTREXATE
  15. DICLOFENAC SODIUM. [Suspect]
     Active Substance: DICLOFENAC SODIUM
     Indication: PRODUCT USED FOR UNKNOWN INDICATION
  16. REMICADE [Concomitant]
     Active Substance: INFLIXIMAB

REACTIONS (12)
  - Drug effect incomplete [Unknown]
  - Skin exfoliation [Unknown]
  - Peripheral swelling [Unknown]
  - Hypoaesthesia [Unknown]
  - Pain in extremity [Unknown]
  - Musculoskeletal stiffness [Unknown]
  - Pain [Unknown]
  - Purulence [Unknown]
  - Hypersensitivity [Unknown]
  - Psoriasis [Unknown]
  - Urticaria [Unknown]
  - Skin fissures [Not Recovered/Not Resolved]

NARRATIVE: CASE EVENT DATE: 201710
